FAERS Safety Report 23250975 (Version 1)
Quarter: 2023Q4

REPORT INFORMATION
  Report Type: Spontaneous
  Country: US (occurrence: None)
  Receive Date: 20231130
  Receipt Date: 20231130
  Transmission Date: 20240110
  Serious: Yes (Hospitalization)
  Sender: FDA-Public Use
  Company Number: None

PATIENT
  Age: 43 Year
  Sex: Female

DRUGS (1)
  1. CEFTRIAXONE [Suspect]
     Active Substance: CEFTRIAXONE\CEFTRIAXONE SODIUM
     Dosage: FREQUENCY : ONCE;?
     Route: 041
     Dates: start: 20231104, end: 20231104

REACTIONS (2)
  - Angioedema [None]
  - Paraesthesia oral [None]

NARRATIVE: CASE EVENT DATE: 20231104
